FAERS Safety Report 19712025 (Version 3)
Quarter: 2021Q3

REPORT INFORMATION
  Report Type: Report from Study
  Country: AU (occurrence: AU)
  Receive Date: 20210816
  Receipt Date: 20210923
  Transmission Date: 20211014
  Serious: Yes (Other)
  Sender: FDA-Public Use
  Company Number: AU-VERTEX PHARMACEUTICALS-2021-012248

PATIENT
  Age: 13 Year
  Sex: Male
  Weight: 64 kg

DRUGS (10)
  1. SALT [Concomitant]
     Active Substance: SODIUM CHLORIDE
     Indication: PROPHYLAXIS
     Dosage: 10 DOSAGE FORM, QD
     Route: 048
     Dates: start: 200801
  2. AMOXICILLIN. [Concomitant]
     Active Substance: AMOXICILLIN
     Indication: GINGIVAL ABSCESS
     Dosage: 3 DOSAGE FORM, QD
     Route: 048
     Dates: start: 20210824
  3. VX?445/VX?661/VX?770 [Suspect]
     Active Substance: ELEXACAFTOR\IVACAFTOR\TEZACAFTOR
     Indication: CYSTIC FIBROSIS
     Dosage: 2 TABS (VX445 100MG, TEZ 50MG, IVA 75 MG) AM; 1 TAB (IVA 150MG) PM
     Route: 048
     Dates: start: 20200318
  4. FLIXOTIDE [Concomitant]
     Active Substance: FLUTICASONE PROPIONATE
     Indication: RESPIRATORY DISORDER PROPHYLAXIS
     Dosage: 2 PUFFS, BID
     Dates: start: 201601
  5. VYVANSE [Concomitant]
     Active Substance: LISDEXAMFETAMINE DIMESYLATE
     Indication: ATTENTION DEFICIT HYPERACTIVITY DISORDER
     Dosage: 1 DOSAGE FORM, QD
     Route: 048
     Dates: start: 20190616
  6. PARACETAMOL [Concomitant]
     Active Substance: ACETAMINOPHEN
     Indication: GINGIVAL ABSCESS
     Dosage: 2 DOSAGE FORM, PRN
     Route: 048
     Dates: start: 20210824
  7. VITABDECK [Concomitant]
     Indication: NUTRITIONAL SUPPLEMENTATION
     Dosage: 1 DOSAGE FORM, QD
     Route: 048
     Dates: start: 201003
  8. MELATONIN [Concomitant]
     Active Substance: MELATONIN
     Indication: ATTENTION DEFICIT HYPERACTIVITY DISORDER
     Dosage: 3 MG, QD
     Route: 048
     Dates: start: 20190616
  9. SALBUTAMOL [Concomitant]
     Active Substance: ALBUTEROL
     Indication: RESPIRATORY DISORDER PROPHYLAXIS
     Dosage: 4 PUFFS, BID
     Dates: start: 201601
  10. VITAMIN D [COLECALCIFEROL] [Concomitant]
     Active Substance: CHOLECALCIFEROL
     Indication: NUTRITIONAL SUPPLEMENTATION
     Dosage: 2 DOSAGE FORM, QD
     Route: 048
     Dates: start: 201003

REACTIONS (1)
  - Suicidal ideation [Recovered/Resolved]

NARRATIVE: CASE EVENT DATE: 20210602
